FAERS Safety Report 8798646 (Version 2)
Quarter: 2012Q4

REPORT INFORMATION
  Report Type: Report from Study
  Country: JP (occurrence: JP)
  Receive Date: 20120920
  Receipt Date: 20121221
  Transmission Date: 20130627
  Serious: Yes (Other)
  Sender: FDA-Public Use
  Company Number: JP-VERTEX PHARMACEUTICAL INC.-AE-2012-011248

PATIENT
  Age: 64 Year
  Sex: Female

DRUGS (12)
  1. VX-950 (TELAPREVIR) [Suspect]
     Indication: CHRONIC HEPATITIS C
     Dosage: 1500 mg, qd
     Route: 048
     Dates: start: 20120605, end: 20120827
  2. RIBAVIRIN [Suspect]
     Indication: CHRONIC HEPATITIS C
     Dosage: 400 mg, qd
     Route: 048
     Dates: start: 20120605, end: 20120624
  3. RIBAVIRIN [Suspect]
     Dosage: 200 mg, qd
     Route: 048
     Dates: start: 20120625, end: 20121008
  4. RIBAVIRIN [Suspect]
     Dosage: 400 mg, qd
     Route: 048
     Dates: start: 20121009, end: 20121114
  5. PEGINTERFERON ALFA-2B [Suspect]
     Indication: CHRONIC HEPATITIS C
     Dosage: 1 ?g/kg, qw
     Route: 058
     Dates: start: 20120605, end: 20120618
  6. PEGINTERFERON ALFA-2B [Suspect]
     Dosage: 0.7 ?g/kg, qw
     Route: 058
     Dates: start: 20120625, end: 20120625
  7. PEGINTERFERON ALFA-2B [Suspect]
     Dosage: 0.8 ?g/kg, qw
     Route: 058
     Dates: start: 20120702, end: 20121114
  8. EPADEL-S [Concomitant]
     Dosage: 1800 mg, qd
     Route: 048
  9. CLARITIN REDITABS [Concomitant]
     Dosage: 10 mg, qd
     Route: 048
  10. PARIET [Concomitant]
     Dosage: 10 mg, qd
     Route: 048
  11. MAGLAX [Concomitant]
     Dosage: 1980 mg, qd
     Route: 048
  12. FEROTYM [Concomitant]
     Dosage: 100 mg, qd
     Route: 048

REACTIONS (6)
  - Rash [Recovered/Resolved]
  - Anaemia [Not Recovered/Not Resolved]
  - Anaemia [Not Recovered/Not Resolved]
  - Anaemia [Not Recovered/Not Resolved]
  - Platelet count decreased [Not Recovered/Not Resolved]
  - Platelet count decreased [Not Recovered/Not Resolved]
